FAERS Safety Report 6831080-1 (Version None)
Quarter: 2010Q3

REPORT INFORMATION
  Report Type: 
  Country: None (occurrence: None)
  Receive Date: 20100712
  Receipt Date: 20100609
  Transmission Date: 20110219
  Serious: No
  Sender: FDA-Public Use
  Company Number: US-BAYER-201016821BCC

PATIENT
  Age: 32 Year
  Sex: Male
  Weight: 118 kg

DRUGS (2)
  1. ALEVE (CAPLET) [Suspect]
     Indication: SINUS HEADACHE
     Dosage: TOTAL DAILY DOSE: 880 MG  UNIT DOSE: 220 MG
     Route: 048
     Dates: start: 20100609
  2. ZYRTEC-D 12 HOUR [Concomitant]
     Route: 065

REACTIONS (1)
  - NO ADVERSE EVENT [None]
